FAERS Safety Report 17054526 (Version 1)
Quarter: 2019Q4

REPORT INFORMATION
  Report Type: Spontaneous
  Country: NG (occurrence: NG)
  Receive Date: 20191120
  Receipt Date: 20191120
  Transmission Date: 20200122
  Serious: Yes (Congenital Anomaly)
  Sender: FDA-Public Use
  Company Number: NG-FOUNDATIONCONSUMERHC-2019-NG-000008

PATIENT
  Sex: Female
  Weight: 2.6 kg

DRUGS (2)
  1. LEVONORGESTREL (UNSPECIFIED) [Suspect]
     Active Substance: LEVONORGESTREL
     Indication: INTENTIONAL PRODUCT USE ISSUE
     Route: 015
  2. UNSPECIFIED HERBAL CONCOCTIONS [Suspect]
     Active Substance: HERBALS

REACTIONS (3)
  - Thrombocytopenia-absent radius syndrome [Recovered/Resolved with Sequelae]
  - Intentional product misuse [Unknown]
  - Foetal exposure during pregnancy [Unknown]
